FAERS Safety Report 20126848 (Version 1)
Quarter: 2021Q4

REPORT INFORMATION
  Report Type: Spontaneous
  Country: US (occurrence: None)
  Receive Date: 20211129
  Receipt Date: 20211129
  Transmission Date: 20220303
  Serious: Yes (Hospitalization)
  Sender: FDA-Public Use
  Company Number: None

PATIENT
  Age: 23 Year
  Sex: Female

DRUGS (1)
  1. ADAKVEO [Suspect]
     Active Substance: CRIZANLIZUMAB-TMCA
     Indication: Sickle cell disease
     Dosage: FREQUENCY : MONTHLY;?OTHER ROUTE : IV;?
     Route: 042
     Dates: start: 202108

REACTIONS (2)
  - Sickle cell anaemia with crisis [None]
  - Weight increased [None]

NARRATIVE: CASE EVENT DATE: 20211116
